FAERS Safety Report 10400376 (Version 1)
Quarter: 2014Q1

REPORT INFORMATION
  Report Type: Spontaneous
  Country: US (occurrence: None)
  Receive Date: 20130815
  Receipt Date: 20130815
  Transmission Date: 20141002
  Serious: Yes (Hospitalization, Other)
  Sender: FDA-Public Use
  Company Number: ADR-2013-00120

PATIENT
  Sex: Female

DRUGS (1)
  1. BACLOFEN [Suspect]
     Indication: MUSCLE SPASTICITY
     Dosage: 556.5MCG/DAY

REACTIONS (8)
  - Drug withdrawal syndrome [None]
  - Pyrexia [None]
  - Salivary hypersecretion [None]
  - Muscle spasticity [None]
  - Muscle spasms [None]
  - Hyperhidrosis [None]
  - Tachycardia [None]
  - Underdose [None]
